FAERS Safety Report 6373533-9 (Version None)
Quarter: 2009Q3

REPORT INFORMATION
  Report Type: 
  Country: None (occurrence: None)
  Receive Date: 20090924
  Receipt Date: 20090220
  Transmission Date: 20100115
  Serious: No
  Sender: FDA-Public Use
  Company Number: US-ASTRAZENECA-2009UW04869

PATIENT
  Age: 45 Year
  Sex: Female

DRUGS (2)
  1. SEROQUEL [Suspect]
     Route: 048
     Dates: start: 20090218
  2. SEROQUEL [Suspect]
     Route: 048

REACTIONS (5)
  - ILL-DEFINED DISORDER [None]
  - INSOMNIA [None]
  - MUSCLE SPASMS [None]
  - MYALGIA [None]
  - PAIN IN EXTREMITY [None]
